FAERS Safety Report 23838520 (Version 1)
Quarter: 2024Q2

REPORT INFORMATION
  Report Type: Spontaneous
  Country: HR (occurrence: HR)
  Receive Date: 20240509
  Receipt Date: 20240509
  Transmission Date: 20240716
  Serious: Yes (Other)
  Sender: FDA-Public Use
  Company Number: HR-002147023-NVSC2024HR095777

PATIENT
  Age: 63 Year
  Sex: Male

DRUGS (13)
  1. ENTRESTO [Suspect]
     Active Substance: SACUBITRIL\VALSARTAN
     Indication: Heart failure with reduced ejection fraction
     Dosage: 1 DOSAGE FORM, BID (49/51MG 2X1)
     Route: 065
     Dates: end: 2022
  2. ENTRESTO [Suspect]
     Active Substance: SACUBITRIL\VALSARTAN
     Dosage: 1 DOSAGE FORM, BID (97/103MG, 2X1)
     Route: 065
     Dates: start: 2022
  3. RIVAROXABAN [Concomitant]
     Active Substance: RIVAROXABAN
     Indication: Product used for unknown indication
     Dosage: 20 MG, QD (1X1)
     Route: 065
     Dates: start: 2022
  4. BISOPROLOL [Concomitant]
     Active Substance: BISOPROLOL\BISOPROLOL FUMARATE
     Indication: Product used for unknown indication
     Dosage: 5 MG, QD (1X1)
     Route: 065
     Dates: start: 2022
  5. BISOPROLOL [Concomitant]
     Active Substance: BISOPROLOL\BISOPROLOL FUMARATE
     Dosage: 5 MG, BID (2X1)
     Route: 065
     Dates: start: 2022
  6. BISOPROLOL [Concomitant]
     Active Substance: BISOPROLOL\BISOPROLOL FUMARATE
     Dosage: UNK (2X5 MG IN 3-4 DAYS)
     Route: 065
  7. EPLERENONE [Concomitant]
     Active Substance: EPLERENONE
     Indication: Product used for unknown indication
     Dosage: 25 MG, QD (1X1)
     Route: 065
     Dates: start: 2022
  8. DAPAGLIFLOZIN [Concomitant]
     Active Substance: DAPAGLIFLOZIN
     Indication: Product used for unknown indication
     Dosage: 10 MG, QD (1X1)
     Route: 065
     Dates: start: 2022
  9. FUROSEMIDE [Concomitant]
     Active Substance: FUROSEMIDE
     Indication: Product used for unknown indication
     Dosage: 40 MG (2X2)
     Route: 065
     Dates: start: 2022
  10. FUROSEMIDE [Concomitant]
     Active Substance: FUROSEMIDE
     Dosage: UNK (FOR THE FIRST 4- 5 DAYS, THEN REDUCE TO 2,1,0))
     Route: 065
  11. FUROSEMIDE [Concomitant]
     Active Substance: FUROSEMIDE
     Dosage: UNK (FURTHER REDUCTION IS EXPECTED ACCORDING TO THE CLINICAL PICTURE)
     Route: 065
     Dates: start: 2022, end: 2022
  12. AMIODARONE [Concomitant]
     Active Substance: AMIODARONE
     Indication: Product used for unknown indication
     Dosage: 200 MG (2X1 FOR 14 DAYS)
     Route: 065
     Dates: start: 2022, end: 2022
  13. AMIODARONE [Concomitant]
     Active Substance: AMIODARONE
     Dosage: 200 MG (1X1)
     Route: 065
     Dates: start: 2022

REACTIONS (2)
  - Arrhythmia [Unknown]
  - Dyspnoea [Unknown]

NARRATIVE: CASE EVENT DATE: 20240401
